FAERS Safety Report 6012490-1 (Version None)
Quarter: 2008Q4

REPORT INFORMATION
  Report Type: 
  Country: None (occurrence: None)
  Receive Date: 20081216
  Receipt Date: 20080423
  Transmission Date: 20090506
  Serious: Yes (Other)
  Sender: FDA-Public Use
  Company Number: US-WYE-H03821708

PATIENT
  Age: 55 Year
  Sex: Female
  Weight: 74.91 kg

DRUGS (4)
  1. EFFEXOR XR [Suspect]
     Indication: DEPRESSION
     Dosage: ^BEGAN WEANING DOSE; CURRENTLY ON 37.5 MG; ^37.5 MG TO 300 MG^,ORAL
     Route: 048
     Dates: start: 20030101, end: 20080401
  2. EFFEXOR XR [Suspect]
     Indication: DEPRESSION
     Dosage: ^BEGAN WEANING DOSE; CURRENTLY ON 37.5 MG; ^37.5 MG TO 300 MG^,ORAL
     Route: 048
     Dates: start: 20080401
  3. LUNESTA [Concomitant]
  4. WELLBUTRIN [Concomitant]

REACTIONS (2)
  - MUSCLE SPASMS [None]
  - UNEVALUABLE EVENT [None]
